FAERS Safety Report 8501795-8 (Version None)
Quarter: 2012Q3

REPORT INFORMATION
  Report Type: 
  Country: None (occurrence: None)
  Receive Date: 20120705
  Receipt Date: 20120705
  Transmission Date: 20120928
  Serious: Yes (Hospitalization)
  Sender: FDA-Public Use
  Company Number: None

PATIENT
  Sex: Female
  Weight: 73 kg

DRUGS (2)
  1. LAMOTRIGINE [Suspect]
  2. DICLOFENAC [Suspect]

REACTIONS (3)
  - DRUG DOSE OMISSION [None]
  - STEVENS-JOHNSON SYNDROME [None]
  - ROTATOR CUFF SYNDROME [None]
